FAERS Safety Report 18034719 (Version 2)
Quarter: 2020Q3

REPORT INFORMATION
  Report Type: Spontaneous
  Country: JP (occurrence: JP)
  Receive Date: 20200716
  Receipt Date: 20200807
  Transmission Date: 20201103
  Serious: Yes (Hospitalization, Other)
  Sender: FDA-Public Use
  Company Number: JP-BAXTER-2020BAX014114

PATIENT
  Age: 51 Year
  Sex: Male
  Weight: 97.7 kg

DRUGS (14)
  1. EXTRANEAL [Suspect]
     Active Substance: CALCIUM CHLORIDE\ICODEXTRIN\MAGNESIUM CHLORIDE\SODIUM CHLORIDE\SODIUM LACTATE
     Indication: PERITONEAL DIALYSIS
     Route: 033
     Dates: start: 20191216, end: 20200213
  2. REMITCH [Concomitant]
     Active Substance: NALFURAFINE HYDROCHLORIDE
     Indication: PRODUCT USED FOR UNKNOWN INDICATION
     Route: 048
     Dates: start: 20191216, end: 20200212
  3. FUROSEMIDE. [Concomitant]
     Active Substance: FUROSEMIDE
     Indication: PRODUCT USED FOR UNKNOWN INDICATION
     Route: 048
     Dates: start: 20191216
  4. ZINC. [Concomitant]
     Active Substance: ZINC
     Indication: PRODUCT USED FOR UNKNOWN INDICATION
     Route: 048
     Dates: start: 20200120, end: 20200212
  5. EXTRANEAL [Suspect]
     Active Substance: CALCIUM CHLORIDE\ICODEXTRIN\MAGNESIUM CHLORIDE\SODIUM CHLORIDE\SODIUM LACTATE
     Indication: FLUID OVERLOAD
  6. FOSRENOL [Concomitant]
     Active Substance: LANTHANUM CARBONATE
     Indication: PRODUCT USED FOR UNKNOWN INDICATION
     Route: 048
     Dates: start: 20191216, end: 20200212
  7. REGUNEAL LCA [Suspect]
     Active Substance: CALCIUM CHLORIDE\DEXTROSE MONOHYDRATE\HYDROCHLORIC ACID\MAGNESIUM CHLORIDE\SODIUM BICARBONATE\SODIUM CHLORIDE\SODIUM HYDROXIDE\SODIUM LACTATE
     Indication: PERITONEAL DIALYSIS
     Route: 033
     Dates: start: 20191031
  8. OLMESARTAN [Concomitant]
     Active Substance: OLMESARTAN
     Indication: PRODUCT USED FOR UNKNOWN INDICATION
     Route: 048
     Dates: start: 20191118
  9. EXTRANEAL [Suspect]
     Active Substance: CALCIUM CHLORIDE\ICODEXTRIN\MAGNESIUM CHLORIDE\SODIUM CHLORIDE\SODIUM LACTATE
     Indication: CHRONIC KIDNEY DISEASE
     Route: 033
     Dates: start: 20191101, end: 20200201
  10. REGUNEAL LCA [Suspect]
     Active Substance: CALCIUM CHLORIDE\DEXTROSE MONOHYDRATE\HYDROCHLORIC ACID\MAGNESIUM CHLORIDE\SODIUM BICARBONATE\SODIUM CHLORIDE\SODIUM HYDROXIDE\SODIUM LACTATE
     Indication: CHRONIC KIDNEY DISEASE
     Route: 033
     Dates: start: 20191101
  11. CALFINA [Concomitant]
     Active Substance: ALFACALCIDOL
     Indication: PRODUCT USED FOR UNKNOWN INDICATION
     Route: 048
     Dates: start: 20191216
  12. ROSUVASTATIN. [Concomitant]
     Active Substance: ROSUVASTATIN
     Indication: PRODUCT USED FOR UNKNOWN INDICATION
     Route: 048
     Dates: start: 20191118
  13. FEBURIC [Concomitant]
     Active Substance: FEBUXOSTAT
     Indication: PRODUCT USED FOR UNKNOWN INDICATION
     Route: 048
     Dates: start: 20191118, end: 20200212
  14. AMLODIPINE [Concomitant]
     Active Substance: AMLODIPINE BESYLATE
     Indication: PRODUCT USED FOR UNKNOWN INDICATION
     Route: 048
     Dates: start: 20191118

REACTIONS (5)
  - Taste disorder [Recovered/Resolved]
  - Weight decreased [Recovered/Resolved]
  - Decreased appetite [Recovering/Resolving]
  - Oedema [Unknown]
  - Hyperaesthesia [Unknown]

NARRATIVE: CASE EVENT DATE: 20200120
